FAERS Safety Report 23337608 (Version 2)
Quarter: 2024Q1

REPORT INFORMATION
  Report Type: Spontaneous
  Country: CA (occurrence: CA)
  Receive Date: 20231226
  Receipt Date: 20240322
  Transmission Date: 20240409
  Serious: Yes (Other)
  Sender: FDA-Public Use
  Company Number: CA-CELLTRION INC.-2022CA017369

PATIENT

DRUGS (10)
  1. INFLECTRA [Suspect]
     Active Substance: INFLIXIMAB-DYYB
     Indication: Colitis ulcerative
     Dosage: 5 MG/KG,IV ON WEEKS 0,2,6 INDUCTION AND THEN Q8WEEKS
     Route: 042
  2. INFLECTRA [Suspect]
     Active Substance: INFLIXIMAB-DYYB
     Dosage: 10 MG/KG FREQUENCY: 8 WEEKS
     Route: 042
     Dates: start: 20221007
  3. INFLECTRA [Suspect]
     Active Substance: INFLIXIMAB-DYYB
     Dosage: 5 MG/KG, FREQUENCY: 8 WEEKS
     Route: 042
     Dates: start: 20221007
  4. INFLECTRA [Suspect]
     Active Substance: INFLIXIMAB-DYYB
     Dosage: 10 MG/KG FREQUENCY: 8 WEEKS
     Route: 042
     Dates: start: 20221020
  5. INFLECTRA [Suspect]
     Active Substance: INFLIXIMAB-DYYB
     Dosage: 10 MG/KG FREQUENCY: 8 WEEKS
     Route: 042
     Dates: start: 20221117
  6. INFLECTRA [Suspect]
     Active Substance: INFLIXIMAB-DYYB
     Dosage: 10 MG/KG FREQUENCY: 8 WEEKS
     Route: 042
     Dates: start: 20230105
  7. INFLECTRA [Suspect]
     Active Substance: INFLIXIMAB-DYYB
     Dosage: 10 MG/KG FREQUENCY: 8 WEEKS
     Route: 042
     Dates: start: 20230105
  8. INFLECTRA [Suspect]
     Active Substance: INFLIXIMAB-DYYB
     Dosage: 10 MG/KG FREQUENCY: 8 WEEKS
     Route: 042
     Dates: start: 20230426
  9. INFLECTRA [Suspect]
     Active Substance: INFLIXIMAB-DYYB
     Dosage: 10 MG/KG, FREQUENCY: 8 WEEKS
     Route: 042
     Dates: start: 20231206
  10. INFLECTRA [Suspect]
     Active Substance: INFLIXIMAB-DYYB
     Dosage: 400 MG, EVERY 8 WEEKS
     Route: 042
     Dates: start: 20240131

REACTIONS (4)
  - Condition aggravated [Recovering/Resolving]
  - Drug ineffective [Unknown]
  - Lymphadenopathy [Unknown]
  - Lymph node pain [Unknown]

NARRATIVE: CASE EVENT DATE: 20220101
